FAERS Safety Report 4807788-6 (Version None)
Quarter: 2005Q4

REPORT INFORMATION
  Report Type: 
  Country: None (occurrence: None)
  Receive Date: 20051020
  Receipt Date: 20051010
  Transmission Date: 20060501
  Serious: Yes (Hospitalization, Other)
  Sender: FDA-Public Use
  Company Number: 2005135313

PATIENT
  Age: 70 Year
  Sex: Male

DRUGS (5)
  1. ATORVASTATIN CALCIUM [Suspect]
     Indication: ILL-DEFINED DISORDER
     Dosage: 10 MG (1 IN 1), ORAL
     Route: 048
  2. FORTZARR (HYDROCHLOROTHIAZIDE, LOSARTAN POTASSIUM) [Suspect]
     Indication: ILL-DEFINED DISORDER
     Dosage: 1 DOSE FORM (1 IN 1 D), ORAL
     Route: 048
  3. LOGIMAX (FELODIPINE, METOPROLOL SUCCINATE) [Suspect]
     Indication: ILL-DEFINED DISORDER
     Dosage: 5/47.5 MG (1 IN 1 D), ORAL
     Route: 048
  4. TIORFAN (ACETORPHAN) [Suspect]
     Indication: ILL-DEFINED DISORDER
     Dosage: 200 MG (100 MG,2 IN 1 D), ORAL
     Route: 048
     Dates: start: 20050721, end: 20050728
  5. LOPERAMIDE [Suspect]
     Indication: ILL-DEFINED DISORDER
     Dosage: UNKNOWN
     Route: 065
     Dates: start: 20050721, end: 20050728

REACTIONS (4)
  - DIARRHOEA INFECTIOUS [None]
  - HAEMORRHAGIC FEVER [None]
  - HEPATITIS ACUTE [None]
  - RENAL FAILURE ACUTE [None]
